FAERS Safety Report 6211215-4 (Version None)
Quarter: 2009Q2

REPORT INFORMATION
  Report Type: 
  Country: None (occurrence: None)
  Receive Date: 20090602
  Receipt Date: 20090521
  Transmission Date: 20091009
  Serious: Yes (Other)
  Sender: FDA-Public Use
  Company Number: US-JNJFOC-20090505758

PATIENT
  Sex: Female
  Weight: 131.54 kg

DRUGS (5)
  1. REMICADE [Suspect]
     Dosage: LAST DOSE GIVEN
     Route: 042
  2. REMICADE [Suspect]
     Indication: CROHN'S DISEASE
     Route: 042
  3. NEXIUM [Concomitant]
  4. PREDNISONE [Concomitant]
  5. PENTASA [Concomitant]

REACTIONS (4)
  - CHOLANGITIS [None]
  - HEPATIC CIRRHOSIS [None]
  - HEPATIC NECROSIS [None]
  - HEPATITIS [None]
